FAERS Safety Report 7654199-4 (Version None)
Quarter: 2011Q3

REPORT INFORMATION
  Report Type: 
  Country: None (occurrence: None)
  Receive Date: 20110803
  Receipt Date: 20110729
  Transmission Date: 20111222
  Serious: Yes (Hospitalization)
  Sender: FDA-Public Use
  Company Number: NL-ABBOTT-11P-114-0842713-00

PATIENT
  Sex: Male

DRUGS (19)
  1. ACENOCOUMAROL [Concomitant]
     Indication: ANTICOAGULANT THERAPY
     Dosage: ACCORDING SCHEDULE
     Route: 048
  2. FORMOTEROL W/BUDESONIDE [Concomitant]
     Indication: CHRONIC OBSTRUCTIVE PULMONARY DISEASE
     Dosage: 400/12 MCG TURBOHALER 60 DO, 1 TWICE DAY
     Route: 055
  3. OMEPRAZOLE [Concomitant]
     Indication: GASTRIC DISORDER
  4. MAGNESIUM HYDROXIDE [Concomitant]
     Indication: MUSCLE SPASMS
     Route: 048
  5. LEUPROLIDE ACETATE [Suspect]
     Indication: PROSTATE CANCER
     Route: 058
     Dates: start: 20060112
  6. CODEINE W/PARACETAMOL [Concomitant]
     Indication: PAIN
     Dosage: 500/10 MG, 3 TIMES DAILY, PRN
     Route: 048
  7. DICLOFENAC SODIUM [Concomitant]
     Indication: PAIN
     Route: 048
  8. LACTULOSE [Concomitant]
     Indication: CONSTIPATION
     Dosage: 670 MG/ML (500 MG/G)
     Route: 048
  9. METOPROLOL SUCCINATE SR [Concomitant]
     Indication: HYPERTENSION
     Route: 048
  10. FUROSEMIDE [Concomitant]
     Indication: FLUID RETENTION
     Route: 048
  11. HYDROCHLOROTHIAZIDE [Concomitant]
     Indication: HYPERTENSION
     Route: 048
  12. IPRATROPIUM BROMIDE [Concomitant]
     Indication: CHRONIC OBSTRUCTIVE PULMONARY DISEASE
     Route: 055
  13. MACROGOL/SALTS [Concomitant]
     Indication: CONSTIPATION
     Dosage: FOR BEVERAGE- 1 UNITS TWICE A DAY
     Route: 048
  14. LOSARTAN FC [Concomitant]
     Indication: HYPERTENSION
     Route: 048
  15. FENTANYL [Concomitant]
     Indication: PAIN
     Dosage: 25 MCG/HR TRANSDERMAL PATCH, 1 Q 3 DAYS
     Route: 062
  16. OMEPRAZOLE [Concomitant]
     Indication: PROPHYLAXIS
     Route: 048
  17. CINNARIZINE [Concomitant]
     Indication: ANTIALLERGIC THERAPY
     Route: 048
  18. CITALOPRAM HYDROBROMIDE [Concomitant]
     Indication: DEPRESSION
     Route: 048
  19. ENALAPRIL MALEATE [Concomitant]
     Indication: HYPERTENSION
     Route: 048

REACTIONS (2)
  - UPPER LIMB FRACTURE [None]
  - FALL [None]
